FAERS Safety Report 25260578 (Version 5)
Quarter: 2025Q3

REPORT INFORMATION
  Report Type: Spontaneous
  Country: BR (occurrence: BR)
  Receive Date: 20250501
  Receipt Date: 20250709
  Transmission Date: 20251020
  Serious: Yes (Hospitalization, Other)
  Sender: NOVO NORDISK
  Company Number: BR-NOVOPROD-1406084

PATIENT
  Age: 61 Year
  Sex: Female
  Weight: 119 kg

DRUGS (9)
  1. OZEMPIC [Suspect]
     Active Substance: SEMAGLUTIDE
     Dosage: 1 MG, QW
     Route: 058
     Dates: start: 202212, end: 20230112
  2. OZEMPIC [Suspect]
     Active Substance: SEMAGLUTIDE
     Indication: Weight control
     Dosage: 0.5 MG, QW
     Route: 058
  3. OZEMPIC [Suspect]
     Active Substance: SEMAGLUTIDE
     Indication: Obesity
     Dosage: 0.25 MG, QW
     Route: 058
     Dates: start: 20221006
  4. OZEMPIC [Suspect]
     Active Substance: SEMAGLUTIDE
     Route: 058
     Dates: end: 20250521
  5. PURAN [Concomitant]
     Active Substance: LEVOTHYROXINE SODIUM
     Indication: Thyroid disorder
     Dates: start: 1987
  6. SERTRALINE HYDROCHLORIDE [Concomitant]
     Active Substance: SERTRALINE HYDROCHLORIDE
     Indication: Anxiety
     Dates: start: 2021
  7. ROSUVASTATIN [Concomitant]
     Active Substance: ROSUVASTATIN
     Indication: Blood cholesterol
     Dates: start: 2023
  8. METFORMIN HYDROCHLORIDE [Concomitant]
     Active Substance: METFORMIN HYDROCHLORIDE
     Indication: Blood cholesterol
     Dates: start: 2023
  9. CHOLECALCIFEROL [Concomitant]
     Active Substance: CHOLECALCIFEROL
     Indication: Product used for unknown indication
     Dosage: 10000 IU, QW
     Dates: start: 2019

REACTIONS (8)
  - Optic ischaemic neuropathy [Not Recovered/Not Resolved]
  - Vascular rupture [Not Recovered/Not Resolved]
  - Hordeolum [Recovered/Resolved]
  - Hordeolum [Not Recovered/Not Resolved]
  - Abdominal pain upper [Not Recovered/Not Resolved]
  - Headache [Not Recovered/Not Resolved]
  - Inappropriate schedule of product administration [Recovered/Resolved]
  - Product use in unapproved indication [Recovered/Resolved]

NARRATIVE: CASE EVENT DATE: 20221001
